FAERS Safety Report 8233325-2 (Version None)
Quarter: 2012Q1

REPORT INFORMATION
  Report Type: 
  Country: None (occurrence: None)
  Receive Date: 20120326
  Receipt Date: 20120316
  Transmission Date: 20120608
  Serious: Yes (Hospitalization)
  Sender: FDA-Public Use
  Company Number: US-BAYER-2012-026775

PATIENT
  Age: 33 Year
  Sex: Female

DRUGS (8)
  1. LEVOTHYROXINE SODIUM [Concomitant]
     Indication: HYPOTHYROIDISM
     Dosage: 0.05 MG, UNK
     Dates: end: 20100328
  2. FLUTICASONE FUROATE [Concomitant]
     Indication: NECK PAIN
     Dosage: UNK
     Dates: start: 20090603
  3. METFORMIN HCL [Concomitant]
     Dosage: 500 MG, UNK
  4. LEVOTHYROXINE SODIUM [Concomitant]
     Dosage: UNK
  5. FLUTICASONE FUROATE [Concomitant]
     Indication: EAR PAIN
  6. AMOXICILLIN [Concomitant]
     Dosage: 875 MG, UNK
     Dates: start: 20090603
  7. MOTRIN [Concomitant]
     Indication: PAIN
     Dosage: UNK
     Dates: end: 20090605
  8. YAZ [Suspect]
     Dosage: UNK

REACTIONS (1)
  - PULMONARY EMBOLISM [None]
